FAERS Safety Report 4644371-X (Version None)
Quarter: 2005Q2

REPORT INFORMATION
  Report Type: 
  Country: None (occurrence: None)
  Receive Date: 20050331
  Receipt Date: 20041220
  Transmission Date: 20051028
  Serious: No
  Sender: FDA-Public Use
  Company Number: 04P-163-0284090-00

PATIENT
  Age: 71 Year
  Sex: Female
  Weight: 58.0604 kg

DRUGS (10)
  1. HUMIRA [Suspect]
     Indication: RHEUMATOID ARTHRITIS
     Dosage: 40 MG, 1 IN 2 WK, SUBCUTANEOUS
     Route: 058
     Dates: start: 20040301
  2. PREDNISONE [Concomitant]
  3. ATORVASTATIN CALCIUM [Concomitant]
  4. FENOFIBRATE [Concomitant]
  5. DARVOCET [Concomitant]
  6. ZOLPIDEM TARTRATE [Concomitant]
  7. CALCITONIN-SALMON [Concomitant]
  8. ESTROPIPATE [Concomitant]
  9. FELODIPINE [Concomitant]
  10. TOCOPHEROL CONCENTRATE CAP [Concomitant]

REACTIONS (3)
  - ERYTHEMA [None]
  - PRURITUS [None]
  - SKIN WRINKLING [None]
